FAERS Safety Report 8902839 (Version 1)
Quarter: 2012Q4

REPORT INFORMATION
  Report Type: 
  Country: US (occurrence: US)
  Receive Date: 20121112
  Receipt Date: 20121112
  Transmission Date: 20130627
  Serious: No
  Sender: FDA-Public Use
  Company Number: US-PFIZER INC-2012279256

PATIENT
  Age: 67 Year
  Sex: Male
  Weight: 86.62 kg

DRUGS (5)
  1. ZINECARD [Suspect]
     Indication: CARDIOVASCULAR EVENT PROPHYLAXIS
     Dosage: 1476 mg, every 3 weeks
     Route: 042
     Dates: start: 20120924
  2. DOXORUBICIN [Concomitant]
     Dosage: UNK
  3. DACARBAZINE [Concomitant]
     Dosage: UNK
  4. ALOXI [Concomitant]
     Dosage: UNK
  5. DEXAMETHASONE [Concomitant]
     Dosage: UNK

REACTIONS (4)
  - Drug prescribing error [Unknown]
  - Wrong technique in drug usage process [Unknown]
  - Incorrect dose administered [Unknown]
  - Full blood count abnormal [Unknown]
